FAERS Safety Report 8633483 (Version 4)
Quarter: 2013Q1

REPORT INFORMATION
  Report Type: Spontaneous
  Country: FR (occurrence: FR)
  Receive Date: 20120625
  Receipt Date: 20130304
  Transmission Date: 20140127
  Serious: Yes (Other)
  Sender: FDA-Public Use
  Company Number: PHHY2012FR053207

PATIENT
  Age: 74 Year
  Sex: Female
  Weight: 70 kg

DRUGS (5)
  1. ACLASTA [Suspect]
     Indication: OSTEOPOROSIS
     Dosage: 5 MG
     Route: 042
     Dates: start: 20120614
  2. PARACETAMOL [Concomitant]
     Dosage: 4 G
  3. RASILEZ [Concomitant]
     Indication: HYPERTENSION
     Dosage: UNK UNK,
  4. EUPHYTOSE [Concomitant]
     Indication: SLEEP DISORDER
  5. VIT D [Concomitant]

REACTIONS (25)
  - Gamma-glutamyltransferase increased [Unknown]
  - Monocyte count increased [Recovered/Resolved]
  - Platelet count increased [Recovered/Resolved]
  - Hypophagia [Unknown]
  - Alanine aminotransferase increased [Recovered/Resolved]
  - Night sweats [Unknown]
  - Vitiligo [Unknown]
  - Blood pressure increased [Unknown]
  - Nasopharyngitis [Recovered/Resolved]
  - Insomnia [Recovered/Resolved]
  - Hyperhidrosis [Recovered/Resolved]
  - Hypoaesthesia [Unknown]
  - Headache [Recovered/Resolved]
  - Neck pain [Recovered/Resolved]
  - Myalgia [Recovered/Resolved]
  - Arthralgia [Recovered/Resolved]
  - Vomiting [Recovered/Resolved]
  - Chills [Recovered/Resolved]
  - Pain [Recovered/Resolved]
  - Nausea [Recovered/Resolved]
  - Fatigue [Recovered/Resolved]
  - Pain in extremity [Recovered/Resolved]
  - Back pain [Recovered/Resolved]
  - C-reactive protein increased [Unknown]
  - Blood cholesterol increased [Unknown]
